FAERS Safety Report 7758182-X (Version None)
Quarter: 2011Q3

REPORT INFORMATION
  Report Type: 
  Country: None (occurrence: None)
  Receive Date: 20110919
  Receipt Date: 20110913
  Transmission Date: 20111222
  Serious: No
  Sender: FDA-Public Use
  Company Number: US-BIOGENIDEC-2011BI035119

PATIENT

DRUGS (1)
  1. AVONEX [Suspect]
     Indication: MULTIPLE SCLEROSIS
     Route: 030
     Dates: start: 20110608

REACTIONS (4)
  - HYPOAESTHESIA [None]
  - INFLUENZA [None]
  - CHILLS [None]
  - LOSS OF CONTROL OF LEGS [None]
